FAERS Safety Report 6567320-6 (Version None)
Quarter: 2010Q1

REPORT INFORMATION
  Report Type: 
  Country: None (occurrence: None)
  Receive Date: 20100202
  Receipt Date: 20100121
  Transmission Date: 20100710
  Serious: Yes (Hospitalization)
  Sender: FDA-Public Use
  Company Number: PHEH2009US16450

PATIENT
  Sex: Female

DRUGS (3)
  1. EXJADE [Suspect]
     Indication: LYMPHOPROLIFERATIVE DISORDER
     Dosage: 1500 MG DAILY
     Route: 048
  2. ANTINEOPLASTIC AGENTS [Concomitant]
  3. IMMUNOSUPPRESSANTS [Concomitant]
     Indication: MYELODYSPLASTIC SYNDROME

REACTIONS (5)
  - BLOOD PRESSURE DECREASED [None]
  - HEART RATE DECREASED [None]
  - PNEUMONIA [None]
  - PYREXIA [None]
  - RESPIRATORY RATE DECREASED [None]
